FAERS Safety Report 5163692-8 (Version None)
Quarter: 2006Q4

REPORT INFORMATION
  Report Type: 
  Country: None (occurrence: None)
  Receive Date: 20061204
  Receipt Date: 20010516
  Transmission Date: 20070319
  Serious: Yes (Hospitalization)
  Sender: FDA-Public Use
  Company Number: FR-GLAXOSMITHKLINE-B0108543A

PATIENT
  Age: 3 Week
  Sex: Female
  Weight: 3.6 kg

DRUGS (4)
  1. RETROVIR [Suspect]
     Indication: ANTIVIRAL PROPHYLAXIS
     Dosage: 50MG FOUR TIMES PER DAY
     Route: 048
     Dates: start: 20010212, end: 20010223
  2. RETROVIR [Suspect]
     Dosage: 5MG FOUR TIMES PER DAY
     Route: 048
     Dates: start: 20010123, end: 20010211
  3. RETROVIR [Suspect]
     Route: 042
     Dates: start: 20010123, end: 20010123
  4. RETROVIR [Suspect]
     Route: 048

REACTIONS (3)
  - ACCIDENTAL OVERDOSE [None]
  - ANAEMIA [None]
  - VOMITING [None]
